FAERS Safety Report 5590859-7 (Version None)
Quarter: 2007Q4

REPORT INFORMATION
  Report Type: 
  Country: None (occurrence: None)
  Receive Date: 20071214
  Receipt Date: 20061031
  Transmission Date: 20080405
  Serious: Yes (Other)
  Sender: FDA-Public Use
  Company Number: S06-USA-04559-01

PATIENT
  Age: 76 Year
  Sex: Male
  Weight: 89.8122 kg

DRUGS (5)
  1. NAMENDA [Suspect]
     Indication: AMNESIA
     Dosage: 5 MG QD PO
     Route: 048
     Dates: start: 20040512, end: 20040729
  2. DILANTIN [Concomitant]
  3. DEXAMETHASONE TAB [Concomitant]
  4. ARICEPT [Concomitant]
  5. COUMADIN [Concomitant]

REACTIONS (1)
  - CONVULSION [None]
